FAERS Safety Report 8988731 (Version 1)
Quarter: 2012Q4

REPORT INFORMATION
  Report Type: 
  Country: FR (occurrence: FR)
  Receive Date: 20121228
  Receipt Date: 20121228
  Transmission Date: 20130627
  Serious: Yes (Hospitalization, Other)
  Sender: FDA-Public Use
  Company Number: FR-BRISTOL-MYERS SQUIBB COMPANY-17230590

PATIENT
  Age: 60 Year
  Sex: Female
  Weight: 115 kg

DRUGS (2)
  1. YERVOY [Suspect]
     Indication: MALIGNANT MELANOMA
     Dosage: 1df=5mg/mL (ipilimumab) 4 intravenous courses 
4th course of Yervoy-22Aug12
     Route: 042
     Dates: start: 20120529, end: 20120822
  2. SURGAM [Suspect]
     Dosage: tabs
     Route: 048
     Dates: start: 20120827, end: 20120903

REACTIONS (5)
  - Renal failure acute [Recovered/Resolved]
  - Renal tubular necrosis [Recovered/Resolved]
  - Pyelonephritis [Unknown]
  - Adrenal insufficiency [Unknown]
  - Hypophysitis [Unknown]
